FAERS Safety Report 17988499 (Version 1)
Quarter: 2020Q3

REPORT INFORMATION
  Report Type: Spontaneous
  Country: JP (occurrence: JP)
  Receive Date: 20200707
  Receipt Date: 20200707
  Transmission Date: 20201103
  Serious: Yes (Other)
  Sender: FDA-Public Use
  Company Number: JP-ROCHE-2637235

PATIENT
  Age: 8 Decade
  Sex: Female

DRUGS (1)
  1. XELODA [Suspect]
     Active Substance: CAPECITABINE
     Indication: BREAST CANCER
     Dosage: IT IS ONE TAKING WEEKLY HOLIDAY MEDICINE FOR UNCERTAIN DOSAGE AND TWO WEEKS.
     Route: 048

REACTIONS (1)
  - Metastases to skin [Not Recovered/Not Resolved]
